FAERS Safety Report 17474821 (Version 3)
Quarter: 2020Q2

REPORT INFORMATION
  Report Type: Spontaneous
  Country: US (occurrence: US)
  Receive Date: 20200228
  Receipt Date: 20200414
  Transmission Date: 20200713
  Serious: No
  Sender: FDA-Public Use
  Company Number: NVSC2020US057092

PATIENT
  Sex: Female

DRUGS (2)
  1. CAPECITABINE. [Concomitant]
     Active Substance: CAPECITABINE
     Indication: PRODUCT USED FOR UNKNOWN INDICATION
     Dosage: 1500 MG, BID
     Route: 065
  2. TYKERB [Suspect]
     Active Substance: LAPATINIB DITOSYLATE
     Indication: GALLBLADDER CANCER
     Dosage: 750 MG, QD
     Route: 048
     Dates: start: 20200117

REACTIONS (5)
  - Weight decreased [Unknown]
  - Erythema [Unknown]
  - Decreased appetite [Unknown]
  - Pruritus [Unknown]
  - Rash [Unknown]
